FAERS Safety Report 7326355-6 (Version None)
Quarter: 2011Q1

REPORT INFORMATION
  Report Type: 
  Country: None (occurrence: None)
  Receive Date: 20110302
  Receipt Date: 20110203
  Transmission Date: 20110831
  Serious: No
  Sender: FDA-Public Use
  Company Number: US-B.I. PHARMACEUTICALS,INC./RIDGEFIELD-2011-BP-03332BP

PATIENT
  Age: 64 Year
  Sex: Male

DRUGS (9)
  1. OXYGEN [Concomitant]
     Indication: CHRONIC OBSTRUCTIVE PULMONARY DISEASE
     Dosage: PRN
     Route: 045
  2. SPIRIVA [Suspect]
     Indication: CHRONIC OBSTRUCTIVE PULMONARY DISEASE
     Dosage: 18 MCG
     Route: 055
     Dates: start: 20070101
  3. MAG OXIDE [Concomitant]
  4. ASPIRIN [Concomitant]
     Indication: CARDIAC DISORDER
  5. ZOCOR [Concomitant]
     Indication: CARDIAC DISORDER
  6. METOPROLOL [Concomitant]
     Indication: CARDIAC DISORDER
  7. AMIODARONE [Concomitant]
     Indication: CARDIAC DISORDER
  8. ADVAIR DISKUS 100/50 [Concomitant]
     Indication: CHRONIC OBSTRUCTIVE PULMONARY DISEASE
     Dates: start: 20070101
  9. PRILOSEC [Concomitant]
     Indication: CHRONIC OBSTRUCTIVE PULMONARY DISEASE

REACTIONS (3)
  - HEADACHE [None]
  - TENSION [None]
  - ATRIAL FIBRILLATION [None]
